FAERS Safety Report 19473179 (Version 1)
Quarter: 2021Q2

REPORT INFORMATION
  Report Type: Spontaneous
  Country: CN (occurrence: CN)
  Receive Date: 20210629
  Receipt Date: 20210629
  Transmission Date: 20210717
  Serious: Yes (Other)
  Sender: FDA-Public Use
  Company Number: CN-009507513-2106CHN006897

PATIENT
  Age: 67 Year
  Sex: Female

DRUGS (2)
  1. PEMBROLIZUMAB. [Suspect]
     Active Substance: PEMBROLIZUMAB
     Indication: TRIPLE NEGATIVE BREAST CANCER
     Dosage: 200 MILLIGRAM, EVERY 3 WEEKS
     Dates: start: 202001, end: 2020
  2. GEMCITABINE. [Concomitant]
     Active Substance: GEMCITABINE
     Indication: TRIPLE NEGATIVE BREAST CANCER
     Dosage: AS THIRD LINE TREATMENT
     Dates: start: 202001, end: 2020

REACTIONS (2)
  - Product use in unapproved indication [Unknown]
  - Tumour hyperprogression [Unknown]

NARRATIVE: CASE EVENT DATE: 2020
